FAERS Safety Report 10990401 (Version 4)
Quarter: 2016Q1

REPORT INFORMATION
  Report Type: Report from Study
  Country: US (occurrence: US)
  Receive Date: 20150406
  Receipt Date: 20160121
  Transmission Date: 20160525
  Serious: Yes (Hospitalization, Other)
  Sender: FDA-Public Use
  Company Number: US-SANOFI-AVENTIS-2013SA094809

PATIENT
  Age: 74 Year
  Sex: Female

DRUGS (2)
  1. AUBAGIO [Suspect]
     Active Substance: TERIFLUNOMIDE
     Indication: MULTIPLE SCLEROSIS
     Route: 048
     Dates: start: 20130805
  2. AUBAGIO [Suspect]
     Active Substance: TERIFLUNOMIDE
     Indication: MULTIPLE SCLEROSIS
     Route: 048
     Dates: start: 201402

REACTIONS (19)
  - Unevaluable event [Not Recovered/Not Resolved]
  - Urinary tract infection [Unknown]
  - Spinal cord compression [Unknown]
  - Vision blurred [Recovered/Resolved]
  - Pain [Unknown]
  - Visual impairment [Unknown]
  - Muscle spasms [Unknown]
  - Limb discomfort [Unknown]
  - Gout [Unknown]
  - Fatigue [Unknown]
  - Asthenia [Unknown]
  - Lacrimation increased [Unknown]
  - Nausea [Recovered/Resolved]
  - Cataract [Unknown]
  - Dizziness [Recovered/Resolved]
  - Paraesthesia [Unknown]
  - Abasia [Unknown]
  - Balance disorder [Unknown]
  - Condition aggravated [Unknown]

NARRATIVE: CASE EVENT DATE: 201310
